FAERS Safety Report 5875828-1 (Version None)
Quarter: 2008Q3

REPORT INFORMATION
  Report Type: 
  Country: None (occurrence: None)
  Receive Date: 20080909
  Receipt Date: 20080828
  Transmission Date: 20090109
  Serious: Yes (Death, Hospitalization, Other)
  Sender: FDA-Public Use
  Company Number: JP-PFIZER INC-2008066365

PATIENT
  Age: 63 Year
  Sex: Male
  Weight: 50 kg

DRUGS (2)
  1. SOLU-MEDROL [Suspect]
     Indication: ACQUIRED HAEMOPHILIA
     Route: 042
  2. PREDNISOLONE [Suspect]
     Dosage: DAILY DOSE:50MG
     Route: 042

REACTIONS (5)
  - BRAIN HERNIATION [None]
  - CEREBRAL HAEMORRHAGE [None]
  - HAEMORRHAGIC INFARCTION [None]
  - INFECTION [None]
  - THROMBOCYTOPENIA [None]
